FAERS Safety Report 10395109 (Version 1)
Quarter: 2014Q3

REPORT INFORMATION
  Report Type: Spontaneous
  Country: US (occurrence: None)
  Receive Date: 20140815
  Receipt Date: 20140815
  Transmission Date: 20150326
  Serious: Yes (Hospitalization, Disabling, Other)
  Sender: FDA-Public Use
  Company Number: None

PATIENT
  Age: 78 Year
  Sex: Female
  Weight: 62.7 kg

DRUGS (12)
  1. VIT B6 [Concomitant]
  2. ALENDRONATE [Suspect]
     Active Substance: ALENDRONATE SODIUM
     Indication: OSTEOPOROSIS
     Route: 048
     Dates: start: 2005, end: 2009
  3. PACEMAKER [Concomitant]
  4. PHENYTOIN. [Concomitant]
     Active Substance: PHENYTOIN
  5. MIRALAX [Concomitant]
     Active Substance: POLYETHYLENE GLYCOL 3350
  6. VIT D5 [Concomitant]
  7. CALC [Concomitant]
  8. MULTIVIT/MIN [Concomitant]
     Active Substance: MINERALS\VITAMINS
  9. DIAZEPAM. [Concomitant]
     Active Substance: DIAZEPAM
  10. KEPPRA [Concomitant]
     Active Substance: LEVETIRACETAM
  11. LEVOTHYROXINE [Concomitant]
     Active Substance: LEVOTHYROXINE
  12. IBANDRONATE [Suspect]
     Active Substance: IBANDRONATE SODIUM
     Indication: OSTEOPOROSIS
     Route: 048
     Dates: start: 2009, end: 2014

REACTIONS (2)
  - Femur fracture [None]
  - Atypical femur fracture [None]

NARRATIVE: CASE EVENT DATE: 20140805
